FAERS Safety Report 7424981-7 (Version None)
Quarter: 2011Q2

REPORT INFORMATION
  Report Type: 
  Country: None (occurrence: None)
  Receive Date: 20110419
  Receipt Date: 20110408
  Transmission Date: 20111010
  Serious: Yes (Other)
  Sender: FDA-Public Use
  Company Number: GB-BAYER-2011-033388

PATIENT
  Age: 28 Year
  Sex: Female

DRUGS (1)
  1. YASMIN, FILM-COATED TABLETS, 0.03 MG/3 MG [Suspect]
     Dosage: UNK
     Dates: start: 20090101

REACTIONS (2)
  - VISUAL ACUITY REDUCED [None]
  - HERPES OPHTHALMIC [None]
